FAERS Safety Report 4811805-7 (Version None)
Quarter: 2005Q4

REPORT INFORMATION
  Report Type: 
  Country: None (occurrence: None)
  Receive Date: 20051027
  Receipt Date: 20051027
  Transmission Date: 20060501
  Serious: Yes (Hospitalization)
  Sender: FDA-Public Use
  Company Number: None

PATIENT
  Age: 78 Year
  Sex: Female
  Weight: 78.1 kg

DRUGS (7)
  1. PROMETHAZINE [Suspect]
     Indication: NAUSEA
     Dosage: 25 MG X 2 DOSES  Q15MINUTES  IV   2 DOSES
     Route: 042
     Dates: start: 20051025, end: 20051025
  2. PROMETHAZINE [Suspect]
     Indication: VERTIGO
     Dosage: 25 MG X 2 DOSES  Q15MINUTES  IV   2 DOSES
     Route: 042
     Dates: start: 20051025, end: 20051025
  3. TOPROL-XL [Concomitant]
  4. HYDROCHLOROTHIAZIDE [Concomitant]
  5. ASPIRIN [Concomitant]
  6. VITAMIN D SUPPLEMENT [Concomitant]
  7. NIACIN SUPPLEMENT [Concomitant]

REACTIONS (4)
  - AGGRESSION [None]
  - AGITATION [None]
  - DIFFICULTY IN WALKING [None]
  - HALLUCINATION, VISUAL [None]
